FAERS Safety Report 8372098-X (Version None)
Quarter: 2012Q2

REPORT INFORMATION
  Report Type: 
  Country: None (occurrence: None)
  Receive Date: 20120520
  Receipt Date: 20120514
  Transmission Date: 20120825
  Serious: Yes (Other)
  Sender: FDA-Public Use
  Company Number: US-AMGEN-USASP2012023305

PATIENT
  Age: 66 Year
  Sex: Male

DRUGS (7)
  1. FOLIC ACID [Concomitant]
     Dosage: 1 MG, UNK
  2. ENBREL [Suspect]
     Indication: RHEUMATOID ARTHRITIS
     Dosage: 50 MG, QWK
     Dates: start: 20120301
  3. DIOVAN [Concomitant]
     Dosage: 1 MG, UNK
  4. CRESTOR [Concomitant]
     Dosage: 1 MG, UNK
  5. METHOTREXATE [Concomitant]
     Dosage: 1 MG, UNK
  6. PREDNISONE [Concomitant]
     Dosage: 1 MG, UNK
  7. CALCIUM [Concomitant]
     Dosage: 2 MG, UNK

REACTIONS (7)
  - HEADACHE [None]
  - RASH PUSTULAR [None]
  - PAIN [None]
  - ACNE [None]
  - VISUAL IMPAIRMENT [None]
  - NIGHT BLINDNESS [None]
  - RASH [None]
